FAERS Safety Report 12799233 (Version 3)
Quarter: 2017Q3

REPORT INFORMATION
  Report Type: Spontaneous
  Country: US (occurrence: US)
  Receive Date: 20160930
  Receipt Date: 20170731
  Transmission Date: 20171127
  Serious: No
  Sender: FDA-Public Use
  Company Number: US-ASTRAZENECA-2016SE90233

PATIENT
  Sex: Male
  Weight: 59.9 kg

DRUGS (5)
  1. SYMBICORT [Suspect]
     Active Substance: BUDESONIDE\FORMOTEROL FUMARATE DIHYDRATE
     Indication: CHRONIC OBSTRUCTIVE PULMONARY DISEASE
     Dosage: 160/4.5, TWO PUFFS, TWICE A DAY
     Route: 055
     Dates: start: 201509
  2. ASPIRIN. [Concomitant]
     Active Substance: ASPIRIN
     Indication: ANTICOAGULANT THERAPY
     Route: 048
     Dates: start: 201506
  3. LIPITOR [Concomitant]
     Active Substance: ATORVASTATIN CALCIUM
     Indication: PROPHYLAXIS
     Route: 048
     Dates: start: 201506
  4. SINGULAIR [Concomitant]
     Active Substance: MONTELUKAST SODIUM
     Indication: HYPERSENSITIVITY
     Dosage: DAILY, AT NIGHT
     Route: 048
     Dates: start: 201509
  5. SYMBICORT [Suspect]
     Active Substance: BUDESONIDE\FORMOTEROL FUMARATE DIHYDRATE
     Indication: EMPHYSEMA
     Dosage: 160/4.5, TWO PUFFS, TWICE A DAY
     Route: 055
     Dates: start: 201509

REACTIONS (6)
  - Drug ineffective [Unknown]
  - Product quality issue [Unknown]
  - Therapeutic response shortened [Unknown]
  - Dyspnoea [Unknown]
  - Off label use of device [Unknown]
  - Intentional product misuse [Unknown]
